FAERS Safety Report 10284266 (Version 1)
Quarter: 2014Q3

REPORT INFORMATION
  Report Type: Spontaneous
  Country: FR (occurrence: None)
  Receive Date: 20140703
  Receipt Date: 20140703
  Transmission Date: 20150326
  Serious: Yes (Hospitalization)
  Sender: FDA-Public Use
  Company Number: B1002251A

PATIENT
  Age: 77 Year
  Sex: Female

DRUGS (5)
  1. DULOXETINE CAPSULE (DULOXETINE) [Suspect]
     Active Substance: DULOXETINE
     Indication: DEPRESSION
     Route: 048
     Dates: start: 201405, end: 20140514
  2. TENORETIC [Suspect]
     Active Substance: ATENOLOL\CHLORTHALIDONE
     Indication: PRODUCT USED FOR UNKNOWN INDICATION
     Dosage: 1 UNIT PER DAY/ORAL
     Route: 048
     Dates: end: 20140514
  3. PAROXETINE HYDROCHLORIDE (FORMULATION UNKNOWN) (PAROXETINE HYDROCHLORIDE) [Suspect]
     Active Substance: PAROXETINE HYDROCHLORIDE
     Indication: PRODUCT USED FOR UNKNOWN INDICATION
     Dosage: 1 UNIT PER DAY/ORAL
     Route: 048
     Dates: start: 201403, end: 201404
  4. TIANEPTINE SODIUM (TIANEPTINE SODIUM) [Suspect]
     Active Substance: TIANEPTINE SODIUM
     Indication: DEPRESSION
     Dosage: 2 UNIT PER DAY/ORAL
     Route: 048
     Dates: start: 201402
  5. PRAZEPAM TABLET (PRAZEPAM) [Suspect]
     Active Substance: PRAZEPAM
     Indication: DEPRESSION
     Route: 048
     Dates: start: 201402

REACTIONS (1)
  - Hyponatraemia [None]

NARRATIVE: CASE EVENT DATE: 201404
